FAERS Safety Report 16619772 (Version 10)
Quarter: 2020Q4

REPORT INFORMATION
  Report Type: Report from Study
  Country: BR (occurrence: BR)
  Receive Date: 20190723
  Receipt Date: 20201103
  Transmission Date: 20210113
  Serious: Yes (Hospitalization)
  Sender: FDA-Public Use
  Company Number: BR-EISAI MEDICAL RESEARCH-EC-2019-059456

PATIENT
  Age: 63 Year
  Sex: Female
  Weight: 77 kg

DRUGS (17)
  1. PEMBROLIZUMAB. [Suspect]
     Active Substance: PEMBROLIZUMAB
     Route: 041
     Dates: start: 20190725
  2. CAPTOPRIL. [Concomitant]
     Active Substance: CAPTOPRIL
     Dates: start: 20190618, end: 20190808
  3. AMOXICILLIN. [Concomitant]
     Active Substance: AMOXICILLIN
     Dates: start: 20190703, end: 20190709
  4. LOSARTAN. [Concomitant]
     Active Substance: LOSARTAN
     Dates: start: 20190627, end: 20190912
  5. PEMBROLIZUMAB. [Suspect]
     Active Substance: PEMBROLIZUMAB
     Route: 041
     Dates: start: 20190627, end: 20190627
  6. FLUOXETINE [Concomitant]
     Active Substance: FLUOXETINE HYDROCHLORIDE
     Dates: start: 199901
  7. ATORVASTATIN [Concomitant]
     Active Substance: ATORVASTATIN
     Dates: start: 20190711
  8. LENVATINIB [Suspect]
     Active Substance: LENVATINIB
     Route: 048
     Dates: start: 20190725
  9. DIPYRONE [Concomitant]
     Active Substance: DIPYRONE
     Dates: start: 20190509
  10. CODEINE [Concomitant]
     Active Substance: CODEINE
     Dates: start: 20190509
  11. PERIOXIDIN [Concomitant]
     Dates: start: 20190703, end: 20190729
  12. LENVATINIB [Suspect]
     Active Substance: LENVATINIB
     Indication: ENDOMETRIAL CANCER
     Dosage: STARTING AT 20 MG, FLUCTUATED DOSE
     Route: 048
     Dates: start: 20190605, end: 20190708
  13. LENVATINIB [Suspect]
     Active Substance: LENVATINIB
     Route: 048
     Dates: start: 20190709, end: 20190716
  14. CLONAZEPAM. [Concomitant]
     Active Substance: CLONAZEPAM
     Dates: start: 199901
  15. HYDROCHLOROTHIAZIDE. [Concomitant]
     Active Substance: HYDROCHLOROTHIAZIDE
     Dates: start: 20190627, end: 20190808
  16. PEMBROLIZUMAB. [Suspect]
     Active Substance: PEMBROLIZUMAB
     Indication: ENDOMETRIAL CANCER
     Route: 041
     Dates: start: 20190605, end: 20190605
  17. HYDROGEN PEROXIDE. [Concomitant]
     Active Substance: HYDROGEN PEROXIDE
     Dates: start: 20190703, end: 20190729

REACTIONS (1)
  - Acute kidney injury [Recovered/Resolved]

NARRATIVE: CASE EVENT DATE: 20190717
